FAERS Safety Report 7603502-X (Version None)
Quarter: 2011Q2

REPORT INFORMATION
  Report Type: 
  Country: None (occurrence: None)
  Receive Date: 20110629
  Receipt Date: 20110621
  Transmission Date: 20111010
  Serious: Yes (Other)
  Sender: FDA-Public Use
  Company Number: 2011SP029222

PATIENT
  Age: 42 Year
  Sex: Female
  Weight: 85 kg

DRUGS (3)
  1. CERAZETTE (DESOGESTREL /00754001/) [Suspect]
     Indication: CONTRACEPTION
     Dosage: QD, PO
     Route: 048
     Dates: start: 20101221
  2. CERAZETTE (DESOGESTREL /00754001/) [Suspect]
     Indication: AMENORRHOEA
     Dosage: QD, PO
     Route: 048
     Dates: start: 20101221
  3. BRIMONIDINE TARTRATE [Concomitant]

REACTIONS (8)
  - EPILEPSY [None]
  - AMENORRHOEA [None]
  - EMOTIONAL DISTRESS [None]
  - MENORRHAGIA [None]
  - DRUG INTERACTION [None]
  - HEADACHE [None]
  - DYSMENORRHOEA [None]
  - INAPPROPRIATE SCHEDULE OF DRUG ADMINISTRATION [None]
